FAERS Safety Report 24373325 (Version 6)
Quarter: 2024Q4

REPORT INFORMATION
  Report Type: Spontaneous
  Country: US (occurrence: US)
  Receive Date: 20240927
  Receipt Date: 20241005
  Transmission Date: 20250115
  Serious: Yes (Other)
  Sender: ROCHE
  Company Number: US-ROCHE-10000087220

PATIENT

DRUGS (1)
  1. VABYSMO [Suspect]
     Active Substance: FARICIMAB-SVOA
     Indication: Product used for unknown indication
     Dosage: 6 MG/0.5 ML
     Route: 065

REACTIONS (3)
  - Suspected transmission of an infectious agent via product [Unknown]
  - Infection [Unknown]
  - Inflammation [Unknown]
